FAERS Safety Report 4283043-0 (Version None)
Quarter: 2004Q1

REPORT INFORMATION
  Report Type: 
  Country: None (occurrence: None)
  Receive Date: 20040129
  Receipt Date: 20040108
  Transmission Date: 20041129
  Serious: Yes (Hospitalization)
  Sender: FDA-Public Use
  Company Number: 03P-163-0237909-00

PATIENT
  Age: 43 Year
  Sex: Male
  Weight: 80 kg

DRUGS (16)
  1. HUMIRA [Suspect]
     Indication: CROHN'S DISEASE
     Dosage: 40 MG, 1 IN 2 WK, SUBCUTANEOUS
     Route: 058
     Dates: start: 20021119, end: 20031010
  2. PENTASA [Concomitant]
  3. MERCAPTOPURINE [Concomitant]
  4. LANSOPRAZOLE [Concomitant]
  5. ASCORBIC ACID [Concomitant]
  6. TRAMADOL HYDROCHLORIDE [Concomitant]
  7. IRON DEXTRAN [Concomitant]
  8. IRON [Concomitant]
  9. CEFUROXIME AXETIL [Concomitant]
  10. CLAVULIN [Concomitant]
  11. LEVOFLOXACIN [Concomitant]
  12. SPORANOX [Concomitant]
  13. PROBIOTICA [Concomitant]
  14. EPOGEN [Concomitant]
  15. BACTRIM [Concomitant]
  16. MERCAPTOPURINE [Concomitant]

REACTIONS (18)
  - CATHETER SITE ERYTHEMA [None]
  - DIFFICULTY IN WALKING [None]
  - HAEMATOCRIT DECREASED [None]
  - HEPATITIS [None]
  - HEPATOMEGALY [None]
  - HYPOTENSION [None]
  - IMMUNOSUPPRESSION [None]
  - IRON DEFICIENCY ANAEMIA [None]
  - MUSCULOSKELETAL DISCOMFORT [None]
  - MYALGIA [None]
  - NOCARDIOSIS [None]
  - PANCYTOPENIA [None]
  - PARVOVIRUS INFECTION [None]
  - PHARYNGOLARYNGEAL PAIN [None]
  - PLATELET COUNT INCREASED [None]
  - SCAN ABDOMEN ABNORMAL [None]
  - SEPSIS [None]
  - SPLEEN DISORDER [None]
